FAERS Safety Report 6078473-0 (Version None)
Quarter: 2009Q1

REPORT INFORMATION
  Report Type: 
  Country: None (occurrence: None)
  Receive Date: 20090212
  Receipt Date: 20090212
  Transmission Date: 20090719
  Serious: Yes (Disabling)
  Sender: FDA-Public Use
  Company Number: None

PATIENT
  Age: 54 Year
  Sex: Female
  Weight: 90.7194 kg

DRUGS (5)
  1. JANUVIA [Suspect]
     Indication: TYPE 2 DIABETES MELLITUS
     Dosage: 1 TAB DAILY PO
     Route: 048
     Dates: start: 20090124, end: 20090211
  2. GLUCOPHAGE [Concomitant]
  3. ACTOS [Concomitant]
  4. THIAZIDE [Concomitant]
  5. NAPRASIN [Concomitant]

REACTIONS (2)
  - DRY EYE [None]
  - VISION BLURRED [None]
